FAERS Safety Report 24651045 (Version 1)
Quarter: 2024Q4

REPORT INFORMATION
  Report Type: Spontaneous
  Country: GB (occurrence: GB)
  Receive Date: 20241122
  Receipt Date: 20241122
  Transmission Date: 20250115
  Serious: Yes (Hospitalization)
  Sender: TEVA
  Company Number: GB-TAKEDA-2022TUS001652

PATIENT
  Age: 81 Year
  Sex: Male

DRUGS (3)
  1. DEXAMETHASONE [Suspect]
     Active Substance: DEXAMETHASONE
     Indication: Plasma cell myeloma
     Dosage: UNK; ;
     Route: 065
  2. REVLIMID [Suspect]
     Active Substance: LENALIDOMIDE
     Indication: Plasma cell myeloma
     Dosage: UNK; ;
     Route: 065
  3. IXAZOMIB [Suspect]
     Active Substance: IXAZOMIB
     Indication: Plasma cell myeloma
     Dosage: UNK; ;
     Route: 048
     Dates: start: 20220103

REACTIONS (11)
  - Rash [Unknown]
  - Decreased appetite [Unknown]
  - Apathy [Unknown]
  - Back pain [Recovered/Resolved]
  - Constipation [Recovered/Resolved]
  - Dysphagia [Unknown]
  - Musculoskeletal chest pain [Recovered/Resolved]
  - Platelet count decreased [Recovered/Resolved]
  - Epistaxis [Unknown]
  - Depressed mood [Unknown]
  - Muscle strain [Unknown]

NARRATIVE: CASE EVENT DATE: 20220108
